FAERS Safety Report 9553915 (Version 2)
Quarter: 2014Q1

REPORT INFORMATION
  Report Type: Spontaneous
  Country: US (occurrence: None)
  Receive Date: 20130913
  Receipt Date: 20140313
  Transmission Date: 20141002
  Serious: No
  Sender: FDA-Public Use
  Company Number: 1000045824

PATIENT
  Age: 52 Year
  Sex: Female
  Weight: 56.6 kg

DRUGS (2)
  1. DALIRESP [Suspect]
     Indication: OBSTRUCTIVE AIRWAYS DISORDER
     Dosage: 500 MCG (500 MCG, 1 IN 1 D), ORAL
     Route: 048
     Dates: start: 20130326, end: 20130606
  2. ADVAIR (SERETIDE) (SERETIDE) [Concomitant]

REACTIONS (2)
  - Oral mucosal blistering [None]
  - Oropharyngeal pain [None]
